FAERS Safety Report 20847426 (Version 1)
Quarter: 2022Q2

REPORT INFORMATION
  Report Type: Spontaneous
  Country: CA (occurrence: CA)
  Receive Date: 20220519
  Receipt Date: 20220519
  Transmission Date: 20220721
  Serious: Yes (Other)
  Sender: FDA-Public Use
  Company Number: CA-GILEAD-2022-0582085

PATIENT
  Sex: Female

DRUGS (11)
  1. TRUVADA [Suspect]
     Active Substance: EMTRICITABINE\TENOFOVIR DISOPROXIL FUMARATE
     Indication: Primary biliary cholangitis
     Route: 065
  2. CYCLOSPORINE [Concomitant]
     Active Substance: CYCLOSPORINE
  3. CYTARABINE [Concomitant]
     Active Substance: CYTARABINE
  4. HYDROCORTISONE [Concomitant]
     Active Substance: HYDROCORTISONE
  5. LOPINAVIR\RITONAVIR [Concomitant]
     Active Substance: LOPINAVIR\RITONAVIR
  6. METHOTREXATE [Concomitant]
     Active Substance: METHOTREXATE
  7. MYCOPHENOLATE MOFETIL [Concomitant]
     Active Substance: MYCOPHENOLATE MOFETIL
  8. RITUXIMAB [Concomitant]
     Active Substance: RITUXIMAB
  9. TACROLIMUS [Concomitant]
     Active Substance: TACROLIMUS
  10. URSODIOL [Concomitant]
     Active Substance: URSODIOL
  11. VALGANCICLOVIR [Concomitant]
     Active Substance: VALGANCICLOVIR

REACTIONS (2)
  - Rebound effect [Unknown]
  - Off label use [Unknown]
